FAERS Safety Report 8970541 (Version 2)
Quarter: 2012Q4

REPORT INFORMATION
  Report Type: 
  Country: AU (occurrence: AU)
  Receive Date: 20121030
  Receipt Date: 20121030
  Transmission Date: 20130627
  Serious: Yes (Disabling)
  Sender: FDA-Public Use
  Company Number: AU-009507513-1210AUS001551

PATIENT
  Age: 57 Year
  Sex: Male
  Weight: 75 kg

DRUGS (7)
  1. VICTRELIS 200 MG [Suspect]
     Indication: HEPATITIS C
     Dosage: 800 mg, tid
     Route: 048
     Dates: start: 20120712, end: 20120913
  2. RIBAVIRIN [Suspect]
     Dosage: UNK
  3. INTERFERON (UNSPECIFIED) [Suspect]
  4. PANADOL [Concomitant]
     Indication: ARTHRALGIA
     Dosage: UNK, prn
     Route: 048
  5. DONNATAB [Concomitant]
     Indication: ABDOMINAL PAIN
     Dosage: prn
     Route: 048
  6. BRUFEN [Concomitant]
     Indication: ARTHRALGIA
     Dosage: prn,2 times a day
     Route: 048
  7. OMEGA-3 MARINE TRIGLYCERIDES [Concomitant]
     Dosage: prn,6 times/day
     Route: 048
     Dates: start: 20121011

REACTIONS (4)
  - Arthralgia [Recovered/Resolved]
  - Lethargy [Unknown]
  - No therapeutic response [Unknown]
  - Fatigue [Unknown]
